FAERS Safety Report 24680032 (Version 2)
Quarter: 2024Q4

REPORT INFORMATION
  Report Type: Spontaneous
  Country: MX (occurrence: MX)
  Receive Date: 20241129
  Receipt Date: 20241204
  Transmission Date: 20250115
  Serious: Yes (Other)
  Sender: NOVARTIS
  Company Number: MX-002147023-NVSC2024MX226035

PATIENT
  Age: 13 Year
  Sex: Male

DRUGS (3)
  1. OCTREOTIDE [Suspect]
     Active Substance: OCTREOTIDE
     Indication: Blood triglycerides increased
     Dosage: UNK
     Route: 065
  2. OCTREOTIDE [Suspect]
     Active Substance: OCTREOTIDE
  3. OCTREOTIDE [Suspect]
     Active Substance: OCTREOTIDE

REACTIONS (8)
  - Fungaemia [Unknown]
  - Gorham^s disease [Unknown]
  - Cachexia [Unknown]
  - Barrel chest [Unknown]
  - Muscle atrophy [Unknown]
  - Pelvic floor muscle weakness [Unknown]
  - Product use in unapproved indication [Unknown]
  - Product use issue [Unknown]
